FAERS Safety Report 5945573-2 (Version None)
Quarter: 2008Q4

REPORT INFORMATION
  Report Type: 
  Country: None (occurrence: None)
  Receive Date: 20081105
  Receipt Date: 20081028
  Transmission Date: 20090506
  Serious: Yes (Other)
  Sender: FDA-Public Use
  Company Number: CLOF-1000331

PATIENT
  Age: 8 Year
  Sex: Female

DRUGS (1)
  1. EVOLTRA (CLOFARABINE) SOLUTION FOR INFUSION [Suspect]
     Indication: ACUTE LEUKAEMIA

REACTIONS (3)
  - APLASIA [None]
  - HAEMODIALYSIS [None]
  - RENAL FAILURE ACUTE [None]
